FAERS Safety Report 12637417 (Version 1)
Quarter: 2016Q3

REPORT INFORMATION
  Report Type: Spontaneous
  Country: US (occurrence: US)
  Receive Date: 20160809
  Receipt Date: 20160809
  Transmission Date: 20161109
  Serious: No
  Sender: FDA-Public Use
  Company Number: US-BEH-2016061303

PATIENT
  Age: 35 Year
  Sex: Female
  Weight: 135 kg

DRUGS (25)
  1. CELLCEPT [Concomitant]
     Active Substance: MYCOPHENOLATE MOFETIL\MYCOPHENOLATE MOFETIL HYDROCHLORIDE
  2. GLYCOPYRROLATE. [Concomitant]
     Active Substance: GLYCOPYRROLATE
  3. METRONIDAZOLE TOPICAL [Concomitant]
  4. CETIRIZINE HCL [Concomitant]
     Active Substance: CETIRIZINE HYDROCHLORIDE
  5. WARFARIN [Concomitant]
     Active Substance: WARFARIN
  6. MESTINON [Concomitant]
     Active Substance: PYRIDOSTIGMINE BROMIDE
  7. VITAMIN B COMPLEX [Concomitant]
     Active Substance: CYANOCOBALAMIN\DEXPANTHENOL\NIACINAMIDE\PYRIDOXINE HYDROCHLORIDE\RIBOFLAVIN 5^-PHOSPHATE SODIUM\THIAMINE HYDROCHLORIDE\VITAMIN B COMPLEX
  8. LISINOPRIL. [Concomitant]
     Active Substance: LISINOPRIL
  9. ZOFRAN [Concomitant]
     Active Substance: ONDANSETRON HYDROCHLORIDE
  10. PRIVIGEN [Suspect]
     Active Substance: HUMAN IMMUNOGLOBULIN G
  11. MANGANESE [Concomitant]
     Active Substance: MANGANESE\MANGANESE CHLORIDE
  12. ALBUTEROL SULFA HFA [Concomitant]
  13. ACETAMINOPHEN. [Concomitant]
     Active Substance: ACETAMINOPHEN
  14. LIDOCAINE. [Concomitant]
     Active Substance: LIDOCAINE
  15. SINGULAIR [Concomitant]
     Active Substance: MONTELUKAST SODIUM
  16. MUCINEX ER [Concomitant]
  17. EPIPEN [Concomitant]
     Active Substance: EPINEPHRINE
  18. PROTONIX [Concomitant]
     Active Substance: PANTOPRAZOLE SODIUM
  19. FISH OIL [Concomitant]
     Active Substance: FISH OIL
  20. DUONEB [Concomitant]
     Active Substance: ALBUTEROL SULFATE\IPRATROPIUM BROMIDE
  21. QVAR [Concomitant]
     Active Substance: BECLOMETHASONE DIPROPIONATE
  22. METHYLPREDNISOLONE. [Concomitant]
     Active Substance: METHYLPREDNISOLONE
  23. CARAFATE [Concomitant]
     Active Substance: SUCRALFATE
  24. DIPHENHYDRAMINE. [Concomitant]
     Active Substance: DIPHENHYDRAMINE
  25. VITAMIN D [Concomitant]
     Active Substance: CHOLECALCIFEROL

REACTIONS (5)
  - Nausea [Unknown]
  - Vomiting [Unknown]
  - Headache [Unknown]
  - Arthralgia [Unknown]
  - Myalgia [Unknown]

NARRATIVE: CASE EVENT DATE: 201311
